FAERS Safety Report 8978592 (Version 3)
Quarter: 2013Q1

REPORT INFORMATION
  Report Type: Spontaneous
  Country: US (occurrence: US)
  Receive Date: 20121221
  Receipt Date: 20130131
  Transmission Date: 20140127
  Serious: No
  Sender: FDA-Public Use
  Company Number: US-BIOGENIDEC-2012BI061323

PATIENT
  Sex: Female

DRUGS (1)
  1. TYSABRI [Suspect]
     Indication: MULTIPLE SCLEROSIS
     Route: 042
     Dates: start: 20091102

REACTIONS (15)
  - Nonspecific reaction [Unknown]
  - Cognitive disorder [Not Recovered/Not Resolved]
  - Rash [Recovered/Resolved]
  - Erythema [Recovered/Resolved]
  - Diarrhoea [Recovered/Resolved]
  - Frustration [Unknown]
  - Pain [Unknown]
  - Burnout syndrome [Unknown]
  - Central nervous system lesion [Unknown]
  - Mobility decreased [Unknown]
  - Memory impairment [Unknown]
  - Sneezing [Recovered/Resolved]
  - Drug dose omission [Unknown]
  - Fatigue [Unknown]
  - Hypersensitivity [Unknown]
